FAERS Safety Report 5800977-3 (Version None)
Quarter: 2008Q3

REPORT INFORMATION
  Report Type: 
  Country: None (occurrence: None)
  Receive Date: 20080702
  Receipt Date: 20080422
  Transmission Date: 20090109
  Serious: Yes (Other)
  Sender: FDA-Public Use
  Company Number: 2008SP000967

PATIENT
  Age: 47 Year
  Sex: Female
  Weight: 83 kg

DRUGS (5)
  1. SEP-225441 [Suspect]
     Indication: GENERALISED ANXIETY DISORDER
     Dosage: 0.3 MG; TID; ORAL
     Route: 048
     Dates: start: 20080220, end: 20080422
  2. ACETAMIOPHEN [Concomitant]
  3. ADVIL [Concomitant]
  4. ASCORBIC ACID [Concomitant]
  5. CLINDAMYCIN HCL [Concomitant]

REACTIONS (3)
  - COLON CANCER STAGE II [None]
  - DIVERTICULUM [None]
  - POLYP [None]
